FAERS Safety Report 10166277 (Version 2)
Quarter: 2014Q2

REPORT INFORMATION
  Report Type: Spontaneous
  Country: BR (occurrence: BR)
  Receive Date: 20140512
  Receipt Date: 20140523
  Transmission Date: 20141212
  Serious: Yes (Disabling)
  Sender: FDA-Public Use
  Company Number: BR-JNJFOC-20140500460

PATIENT
  Age: 35 Year
  Sex: Male

DRUGS (1)
  1. LEVAQUIN [Suspect]
     Indication: PROSTATE INFECTION
     Route: 065

REACTIONS (7)
  - Abasia [Not Recovered/Not Resolved]
  - Tinnitus [Recovered/Resolved]
  - Tendonitis [Unknown]
  - Pain in extremity [Unknown]
  - Neuropathy peripheral [Recovered/Resolved]
  - Musculoskeletal stiffness [Unknown]
  - Burning sensation [Unknown]
